FAERS Safety Report 6345994-2 (Version None)
Quarter: 2009Q3

REPORT INFORMATION
  Report Type: 
  Country: None (occurrence: None)
  Receive Date: 20090909
  Receipt Date: 20090903
  Transmission Date: 20100115
  Serious: Yes (Other)
  Sender: FDA-Public Use
  Company Number: US-JNJFOC-20090902306

PATIENT
  Age: 61 Year
  Sex: Female

DRUGS (2)
  1. TOPAMAX [Suspect]
     Indication: HEADACHE
     Route: 048
  2. METFORMIN HCL [Concomitant]
     Indication: DIABETES MELLITUS
     Route: 065

REACTIONS (4)
  - ABNORMAL SENSATION IN EYE [None]
  - DECREASED APPETITE [None]
  - DIZZINESS [None]
  - SOMNOLENCE [None]
